FAERS Safety Report 17939489 (Version 1)
Quarter: 2020Q2

REPORT INFORMATION
  Report Type: Spontaneous
  Country: US (occurrence: US)
  Receive Date: 20200624
  Receipt Date: 20200624
  Transmission Date: 20200714
  Serious: No
  Sender: FDA-Public Use
  Company Number: US-MATRIXX INITIATIVES, INC.-2086627

PATIENT
  Age: 87 Year
  Sex: Female
  Weight: 86.36 kg

DRUGS (3)
  1. 50 UNSPECIFIED PRESCRIPTION MEDICATIONS [Concomitant]
  2. ZICAM COLD REMEDY RAPIDMELTS [Suspect]
     Active Substance: HOMEOPATHICS\ZINC ACETATE ANHYDROUS\ZINC GLUCONATE
     Indication: NASOPHARYNGITIS
     Route: 048
     Dates: start: 20200621, end: 20200622
  3. ZINC. [Concomitant]
     Active Substance: ZINC

REACTIONS (2)
  - Ageusia [None]
  - Tongue discomfort [None]
